FAERS Safety Report 14341614 (Version 2)
Quarter: 2018Q1

REPORT INFORMATION
  Report Type: Report from Study
  Country: CN (occurrence: CN)
  Receive Date: 20180102
  Receipt Date: 20180220
  Transmission Date: 20180509
  Serious: Yes (Life-Threatening)
  Sender: FDA-Public Use
  Company Number: CN-ROCHE-2040355

PATIENT
  Age: 76 Year
  Sex: Female
  Weight: 50 kg

DRUGS (6)
  1. JINSHUIBAO [Concomitant]
     Dosage: 3 GRAINS
     Route: 065
     Dates: start: 20170927, end: 20170930
  2. METOCLOPRAMIDE. [Concomitant]
     Active Substance: METOCLOPRAMIDE
     Route: 065
     Dates: start: 20180102
  3. ERLOTINIB [Suspect]
     Active Substance: ERLOTINIB
     Indication: LUNG NEOPLASM MALIGNANT
     Dosage: DATE OF MOST RECENT DOSE 29/NOV/2017
     Route: 048
     Dates: start: 20170523
  4. JINSHUIBAO [Concomitant]
     Dosage: 3 GRAINS
     Route: 065
     Dates: start: 20171019, end: 20171108
  5. BEVACIZUMAB. [Suspect]
     Active Substance: BEVACIZUMAB
     Indication: LUNG NEOPLASM MALIGNANT
     Dosage: DATE OF MOST RECENT DOSE PRIOR TO EVENT 17/AUG/2017
     Route: 041
     Dates: start: 20170523
  6. JINSHUIBAO [Concomitant]
     Dosage: 4 GRAINS
     Route: 065
     Dates: start: 20171108

REACTIONS (1)
  - Electrolyte imbalance [Not Recovered/Not Resolved]

NARRATIVE: CASE EVENT DATE: 20171207
